FAERS Safety Report 4407463-6 (Version None)
Quarter: 2004Q3

REPORT INFORMATION
  Report Type: 
  Country: None (occurrence: None)
  Receive Date: 20040721
  Receipt Date: 20040708
  Transmission Date: 20050211
  Serious: Yes (Hospitalization)
  Sender: FDA-Public Use
  Company Number: 2004SE03992

PATIENT
  Age: 40 Year
  Sex: Female

DRUGS (5)
  1. FASLODEX [Suspect]
     Indication: BREAST CANCER
     Dosage: 500 MG ONCE IM
     Route: 030
     Dates: start: 20040513, end: 20040513
  2. FASLODEX [Suspect]
     Indication: BREAST CANCER
     Dosage: 250 MG ONCE IM
     Route: 030
     Dates: start: 20040610, end: 20040610
  3. ZOMETA [Concomitant]
  4. LENTOGESIC [Concomitant]
  5. MYPRODOL [Concomitant]

REACTIONS (7)
  - DEHYDRATION [None]
  - FATIGUE [None]
  - GAMMA-GLUTAMYLTRANSFERASE INCREASED [None]
  - INFECTION [None]
  - NAUSEA [None]
  - PYREXIA [None]
  - VOMITING [None]
